FAERS Safety Report 5895159-3 (Version None)
Quarter: 2008Q3

REPORT INFORMATION
  Report Type: 
  Country: None (occurrence: None)
  Receive Date: 20080924
  Receipt Date: 20080911
  Transmission Date: 20090109
  Serious: Yes (Other)
  Sender: FDA-Public Use
  Company Number: US-PFIZER INC-2008077577

PATIENT
  Sex: Male
  Weight: 86.363 kg

DRUGS (2)
  1. GABAPENTIN [Suspect]
     Indication: NEUROPATHY PERIPHERAL
     Route: 048
     Dates: start: 20080501, end: 20080601
  2. SOMA [Concomitant]

REACTIONS (1)
  - EJACULATION FAILURE [None]
